FAERS Safety Report 19261828 (Version 1)
Quarter: 2021Q2

REPORT INFORMATION
  Report Type: Spontaneous
  Country: GB (occurrence: GB)
  Receive Date: 20210515
  Receipt Date: 20210515
  Transmission Date: 20210717
  Serious: Yes (Death, Other)
  Sender: FDA-Public Use
  Company Number: GB-TEVA-2021-GB-1901256

PATIENT
  Age: 53 Year
  Sex: Male

DRUGS (4)
  1. DOLUTEGRAVIR [Concomitant]
     Active Substance: DOLUTEGRAVIR
     Indication: HIV INFECTION
     Dosage: 50 MG
     Route: 050
     Dates: start: 20210325, end: 20210330
  2. EMTRICITABINE [Suspect]
     Active Substance: EMTRICITABINE
     Indication: HIV INFECTION
     Dosage: 200 MG
     Route: 050
     Dates: start: 202103
  3. EMTRICITABINE AND TENOFOVIR [Suspect]
     Active Substance: EMTRICITABINE\TENOFOVIR
     Indication: HIV INFECTION
     Route: 050
     Dates: start: 20210329
  4. TENOFOVIR DISOPROXIL [Suspect]
     Active Substance: TENOFOVIR DISOPROXIL
     Indication: HIV INFECTION
     Dosage: 245 MG
     Route: 050
     Dates: start: 202103

REACTIONS (5)
  - Respiratory arrest [Fatal]
  - Wrong technique in product usage process [Recovered/Resolved]
  - Renal impairment [Unknown]
  - Wrong technique in product usage process [Recovered/Resolved]
  - Enteral nutrition [Not Recovered/Not Resolved]

NARRATIVE: CASE EVENT DATE: 202103
